FAERS Safety Report 7682641-1 (Version None)
Quarter: 2011Q3

REPORT INFORMATION
  Report Type: 
  Country: None (occurrence: None)
  Receive Date: 20110810
  Receipt Date: 20110727
  Transmission Date: 20111222
  Serious: Yes (Hospitalization)
  Sender: FDA-Public Use
  Company Number: AUR-APL-2010-01774

PATIENT
  Age: 63 Year
  Sex: Female

DRUGS (3)
  1. ALBUTEROL SULFATE [Concomitant]
  2. MELOXICAM [Suspect]
     Indication: OSTEOARTHRITIS
     Dosage: 15 MG (15 MG, 1 IN 1 D), ORAL
     Route: 048
     Dates: start: 20081203
  3. PREGABALIN [Concomitant]

REACTIONS (5)
  - ARTERIOSCLEROSIS CORONARY ARTERY [None]
  - CHRONIC OBSTRUCTIVE PULMONARY DISEASE [None]
  - SUPRAVENTRICULAR EXTRASYSTOLES [None]
  - CORONARY ARTERY OCCLUSION [None]
  - ANGINA PECTORIS [None]
